FAERS Safety Report 14653170 (Version 1)
Quarter: 2018Q1

REPORT INFORMATION
  Report Type: Spontaneous
  Country: GB (occurrence: LU)
  Receive Date: 20180319
  Receipt Date: 20180319
  Transmission Date: 20180509
  Serious: Yes (Life-Threatening, Other)
  Sender: FDA-Public Use
  Company Number: LU-FRESENIUS KABI-FK201803013

PATIENT
  Age: 54 Year
  Sex: Female

DRUGS (11)
  1. PROPOFOL (MANUFACTURER UNKNOWN) [Suspect]
     Active Substance: PROPOFOL
     Indication: GENERAL ANAESTHESIA
     Route: 051
     Dates: start: 201709, end: 201709
  2. POVIDONE IODEE [Suspect]
     Active Substance: POVIDONE-IODINE
     Indication: INFECTION PROPHYLAXIS
     Route: 061
     Dates: start: 201709, end: 201709
  3. SUFENTA [Suspect]
     Active Substance: SUFENTANIL CITRATE
     Route: 051
     Dates: start: 201709, end: 201709
  4. SEVORANE [Suspect]
     Active Substance: SEVOFLURANE
     Route: 051
     Dates: start: 201709, end: 201709
  5. GLUCOPHAGE [Concomitant]
     Active Substance: METFORMIN HYDROCHLORIDE
     Indication: PRODUCT USED FOR UNKNOWN INDICATION
     Route: 065
  6. SUFENTA [Suspect]
     Active Substance: SUFENTANIL CITRATE
     Indication: GENERAL ANAESTHESIA
     Route: 051
     Dates: start: 201709, end: 201709
  7. PROPOFOL (MANUFACTURER UNKNOWN) [Suspect]
     Active Substance: PROPOFOL
     Route: 051
     Dates: start: 201709, end: 201709
  8. CHLORHEXIDINE (GLUCONATE DE) [Suspect]
     Active Substance: CHLORHEXIDINE GLUCONATE
     Indication: INFECTION PROPHYLAXIS
     Route: 061
     Dates: start: 201709, end: 201709
  9. SEVORANE [Suspect]
     Active Substance: SEVOFLURANE
     Indication: GENERAL ANAESTHESIA
     Route: 051
     Dates: start: 201709, end: 201709
  10. MIVACRON [Suspect]
     Active Substance: MIVACURIUM CHLORIDE
     Indication: GENERAL ANAESTHESIA
     Route: 051
     Dates: start: 201709, end: 201709
  11. MIVACRON [Suspect]
     Active Substance: MIVACURIUM CHLORIDE
     Route: 051
     Dates: start: 201709, end: 201709

REACTIONS (1)
  - Anaphylactic reaction [Recovered/Resolved]

NARRATIVE: CASE EVENT DATE: 201709
